FAERS Safety Report 24608658 (Version 1)
Quarter: 2024Q4

REPORT INFORMATION
  Report Type: Spontaneous
  Country: US (occurrence: None)
  Receive Date: 20241112
  Receipt Date: 20241112
  Transmission Date: 20250114
  Serious: Yes (Hospitalization)
  Sender: Public
  Company Number: None

PATIENT
  Sex: Female

DRUGS (4)
  1. PULMOZYME [Suspect]
     Active Substance: DORNASE ALFA
     Indication: Cystic fibrosis
     Dosage: FREQ: INHALE 2.5 ML (2.5 MG TOTAL) BY MOUTH VIA NEBULIZER EVERY DAY - KEEP REFRIGERATED FROM LIGHT.
     Route: 055
     Dates: start: 20220409
  2. AQUADEKS CAP [Concomitant]
  3. INAPROXEN TAB 250MG [Concomitant]
  4. TOBI PODHALER [Concomitant]
     Active Substance: TOBRAMYCIN

REACTIONS (12)
  - Headache [None]
  - Haemoptysis [None]
  - Chest pain [None]
  - Dyspnoea [None]
  - Infection [None]
  - Infective pulmonary exacerbation of cystic fibrosis [None]
  - Cystic fibrosis gastrointestinal disease [None]
  - Vomiting [None]
  - Fatigue [None]
  - Sleep disorder [None]
  - Loss of personal independence in daily activities [None]
  - Therapy interrupted [None]
